FAERS Safety Report 7717876-2 (Version None)
Quarter: 2011Q3

REPORT INFORMATION
  Report Type: 
  Country: None (occurrence: None)
  Receive Date: 20110824
  Receipt Date: 20110809
  Transmission Date: 20111222
  Serious: Yes (Other)
  Sender: FDA-Public Use
  Company Number: 2011AM005128

PATIENT
  Age: 65 Year
  Sex: Female
  Weight: 60.782 kg

DRUGS (4)
  1. LANTUS [Concomitant]
  2. SYMLIN [Suspect]
     Indication: TYPE 1 DIABETES MELLITUS
     Dosage: 120 MCG; TID; SC 60 MCG; TID; SC
     Route: 058
     Dates: start: 20080101
  3. HUMALOG [Concomitant]
  4. VICTOZA [Concomitant]

REACTIONS (2)
  - UTERINE CANCER [None]
  - NAUSEA [None]
